FAERS Safety Report 12765933 (Version 1)
Quarter: 2016Q3

REPORT INFORMATION
  Report Type: Spontaneous
  Country: US (occurrence: US)
  Receive Date: 20160915
  Receipt Date: 20160915
  Transmission Date: 20161109
  Serious: No
  Sender: FDA-Public Use
  Company Number: None

PATIENT
  Age: 65 Year
  Sex: Female

DRUGS (1)
  1. FORTEO [Suspect]
     Active Substance: TERIPARATIDE
     Indication: SENILE OSTEOPOROSIS
     Dosage: FORTEO 20 MCG - DAILY - PO
     Route: 058
     Dates: start: 20150410

REACTIONS (4)
  - Thyroid function test abnormal [None]
  - Blood calcium increased [None]
  - Connective tissue disorder [None]
  - Increased tendency to bruise [None]
